FAERS Safety Report 9767104 (Version 1)
Quarter: 2013Q4

REPORT INFORMATION
  Report Type: Spontaneous
  Country: US (occurrence: None)
  Receive Date: 20131216
  Receipt Date: 20131216
  Transmission Date: 20140711
  Serious: Yes (Other)
  Sender: FDA-Public Use
  Company Number: None

PATIENT
  Age: 62 Year
  Sex: Male
  Weight: 98.6 kg

DRUGS (1)
  1. SUNITINIB MALATE [Suspect]
     Dates: end: 20131107

REACTIONS (2)
  - Protein urine present [None]
  - Renal vein thrombosis [None]
